APPROVED DRUG PRODUCT: MICAFUNGIN SODIUM
Active Ingredient: MICAFUNGIN SODIUM
Strength: EQ 100MG BASE/VIAL
Dosage Form/Route: INJECTABLE;INTRAVENOUS
Application: A213363 | Product #002 | TE Code: AP
Applicant: JIANGSU HANSOH PHARMACEUTICAL GROUP CO LTD
Approved: Jul 9, 2021 | RLD: No | RS: No | Type: RX